FAERS Safety Report 9252674 (Version 1)
Quarter: 2013Q1

REPORT INFORMATION
  Report Type: Spontaneous
  Country: PR (occurrence: None)
  Receive Date: 20130305
  Receipt Date: 20130305
  Transmission Date: 20140127
  Serious: Yes (Other)
  Sender: FDA-Public Use
  Company Number: 163-21880-12090742

PATIENT
  Age: 70 Year
  Sex: Female
  Weight: 68.95 kg

DRUGS (4)
  1. REVLIMID (LENALIDOMIDE) (25 MILLIGRAM, CAPSULES) [Suspect]
     Indication: PLASMA CELL MYELOMA
     Route: 048
     Dates: start: 20120504
  2. LOSARTAN (LOSARTAN) [Concomitant]
  3. VERAPAMIL (VERAPAMIL) [Concomitant]
  4. ULTRACET (ULTRACET) [Concomitant]

REACTIONS (3)
  - Anal haemorrhage [None]
  - Dizziness [None]
  - Constipation [None]
